FAERS Safety Report 25149979 (Version 1)
Quarter: 2025Q2

REPORT INFORMATION
  Report Type: Spontaneous
  Country: JP (occurrence: JP)
  Receive Date: 20250402
  Receipt Date: 20250402
  Transmission Date: 20250717
  Serious: Yes (Hospitalization)
  Sender: PFIZER
  Company Number: JP-PFIZER INC-202500066601

PATIENT
  Age: 6 Decade
  Sex: Female

DRUGS (1)
  1. AROMASIN [Suspect]
     Active Substance: EXEMESTANE
     Route: 048
     Dates: start: 202411

REACTIONS (3)
  - Pneumonitis [Unknown]
  - Respiratory failure [Unknown]
  - Pneumonia [Unknown]
